FAERS Safety Report 18583339 (Version 2)
Quarter: 2021Q1

REPORT INFORMATION
  Report Type: Report from Study
  Country: US (occurrence: US)
  Receive Date: 20201206
  Receipt Date: 20210115
  Transmission Date: 20210419
  Serious: Yes (Hospitalization)
  Sender: FDA-Public Use
  Company Number: US-BRISTOL-MYERS SQUIBB COMPANY-BMS-2020-102042

PATIENT
  Age: 61 Year
  Sex: Male
  Weight: 69.84 kg

DRUGS (3)
  1. TRABECTEDIN [Suspect]
     Active Substance: TRABECTEDIN
     Indication: MYXOFIBROSARCOMA
     Dosage: 1.5 MILLIGRAM, Q3WK
     Route: 042
     Dates: start: 20200213
  2. NIVOLUMAB [Suspect]
     Active Substance: NIVOLUMAB
     Indication: MYXOFIBROSARCOMA
     Dosage: 206 MILLIGRAM, Q2WK
     Route: 042
  3. IPILIMUMAB [Suspect]
     Active Substance: IPILIMUMAB
     Indication: MYXOFIBROSARCOMA
     Dosage: 62 MILLIGRAM, Q2WK
     Route: 042

REACTIONS (1)
  - Abdominal pain upper [Not Recovered/Not Resolved]

NARRATIVE: CASE EVENT DATE: 20201123
